FAERS Safety Report 8394563 (Version 2)
Quarter: 2014Q4

REPORT INFORMATION
  Report Type: Spontaneous
  Country: US (occurrence: US)
  Receive Date: 20120207
  Receipt Date: 20141104
  Transmission Date: 20150529
  Serious: Yes (Hospitalization, Other)
  Sender: FDA-Public Use
  Company Number: US-GLAXOSMITHKLINE-B0723691A

PATIENT
  Age: 45 Year
  Sex: Male
  Weight: 136 kg

DRUGS (6)
  1. PRAVACHOL [Concomitant]
     Active Substance: PRAVASTATIN SODIUM
  2. AVANDIA [Suspect]
     Active Substance: ROSIGLITAZONE MALEATE
     Indication: DIABETES MELLITUS
     Route: 048
     Dates: start: 20050125, end: 20071130
  3. GLUCOVANCE [Concomitant]
     Active Substance: GLYBURIDE\METFORMIN HYDROCHLORIDE
  4. CELEBREX [Concomitant]
     Active Substance: CELECOXIB
  5. LOTREL [Concomitant]
     Active Substance: AMLODIPINE BESYLATE\BENAZEPRIL HYDROCHLORIDE
  6. METOPROLOL [Concomitant]
     Active Substance: METOPROLOL

REACTIONS (7)
  - Cardiac failure congestive [Unknown]
  - Pleural effusion [Unknown]
  - Pulmonary oedema [Unknown]
  - Myocardial infarction [Unknown]
  - Ischaemic cardiomyopathy [Unknown]
  - Coronary artery disease [Not Recovered/Not Resolved]
  - Angina unstable [Unknown]

NARRATIVE: CASE EVENT DATE: 200603
